FAERS Safety Report 17319744 (Version 1)
Quarter: 2020Q1

REPORT INFORMATION
  Report Type: Spontaneous
  Country: US (occurrence: US)
  Receive Date: 20200125
  Receipt Date: 20200125
  Transmission Date: 20200409
  Serious: No
  Sender: FDA-Public Use
  Company Number: US-AMGEN-USASP2020007952

PATIENT
  Age: 65 Year
  Sex: Female

DRUGS (2)
  1. REPATHA [Suspect]
     Active Substance: EVOLOCUMAB
     Indication: BLOOD CHOLESTEROL INCREASED
     Dosage: 420 MILLIGRAM, QMO
     Route: 065
  2. INSULIN [Concomitant]
     Active Substance: INSULIN NOS
     Indication: DIABETES MELLITUS

REACTIONS (5)
  - Injection site swelling [Unknown]
  - Dyspnoea [Unknown]
  - Injection site mass [Unknown]
  - Device malfunction [Unknown]
  - Injection site pain [Unknown]

NARRATIVE: CASE EVENT DATE: 201902
